FAERS Safety Report 4710372-6 (Version None)
Quarter: 2005Q3

REPORT INFORMATION
  Report Type: 
  Country: None (occurrence: None)
  Receive Date: 20050707
  Receipt Date: 20050623
  Transmission Date: 20060218
  Serious: Yes (Hospitalization)
  Sender: FDA-Public Use
  Company Number: 215263

PATIENT
  Age: 71 Year
  Sex: Male
  Weight: 81 kg

DRUGS (5)
  1. MABTHERA (RITUXIMAB) CONC FOR SOLUTION FOR INFUSION [Suspect]
     Indication: CHRONIC LYMPHOCYTIC LEUKAEMIA
     Dosage: 1000 MG, X6, INTRAVENOUS
     Route: 042
     Dates: start: 20040928, end: 20050215
  2. FLUDARABINE PHOSPHATE [Suspect]
     Indication: CHRONIC LYMPHOCYTIC LEUKAEMIA
     Dosage: 250 MG, X6, INTRAVENOUS
     Route: 042
     Dates: start: 20040929, end: 20050217
  3. CYCLOPHOSPHAMIDE [Suspect]
     Indication: CHRONIC LYMPHOCYTIC LEUKAEMIA
     Dosage: 1500 MG, X6, INTRAVENOUS
     Route: 042
     Dates: start: 20040929, end: 20050217
  4. ALLOPURINOL [Concomitant]
  5. ASPIRIN [Concomitant]

REACTIONS (2)
  - CONJUNCTIVITIS [None]
  - DACRYOSTENOSIS ACQUIRED [None]
